FAERS Safety Report 16379660 (Version 1)
Quarter: 2019Q2

REPORT INFORMATION
  Report Type: Spontaneous
  Country: US (occurrence: US)
  Receive Date: 20190425
  Receipt Date: 20190425
  Transmission Date: 20190711
  Serious: Yes (Other)
  Sender: FDA-Public Use
  Company Number: None

PATIENT
  Age: 68 Year
  Sex: Female
  Weight: 49.7 kg

DRUGS (1)
  1. AXICABTAGENE CILOLEUCAL [Suspect]
     Active Substance: AXICABTAGENE CILOLEUCEL
     Indication: DIFFUSE LARGE B-CELL LYMPHOMA
     Dosage: ?          OTHER FREQUENCY:ONCE;OTHER ROUTE:INFUSED VIA CENTRAL LINE?
     Dates: start: 20180711, end: 20180711

REACTIONS (3)
  - Cytokine release syndrome [None]
  - Encephalopathy [None]
  - Myelodysplastic syndrome [None]

NARRATIVE: CASE EVENT DATE: 20190122
